FAERS Safety Report 25990215 (Version 1)
Quarter: 2025Q4

REPORT INFORMATION
  Report Type: Spontaneous
  Country: US (occurrence: None)
  Receive Date: 20251103
  Receipt Date: 20251103
  Transmission Date: 20260117
  Serious: Yes (Death, Other)
  Sender: ALKERMES
  Company Number: US-ALKERMES INC.-ALK-2025-002927

PATIENT
  Age: 53 Year
  Sex: Male
  Weight: 79.365 kg

DRUGS (5)
  1. VIVITROL [Suspect]
     Active Substance: NALTREXONE
     Indication: Alcoholism
     Dosage: 380 MILLIGRAM, QMO
     Dates: start: 20250331, end: 20250331
  2. NALTREXONE [Concomitant]
     Active Substance: NALTREXONE
     Indication: Product used for unknown indication
     Dosage: UNK
  3. LEXAPRO [Concomitant]
     Active Substance: ESCITALOPRAM OXALATE
     Indication: Product used for unknown indication
     Dosage: 10 MILLIGRAM
     Route: 065
  4. TRAZODONE [Concomitant]
     Active Substance: TRAZODONE HYDROCHLORIDE
     Indication: Product used for unknown indication
     Dosage: 100 MILLIGRAM
     Route: 065
  5. GABAPENTIN [Concomitant]
     Active Substance: GABAPENTIN
     Indication: Product used for unknown indication
     Dosage: 100 MILLIGRAM, TID
     Route: 065

REACTIONS (7)
  - Death [Fatal]
  - Cardiomegaly [Unknown]
  - Feeling abnormal [Unknown]
  - Anxiety [Unknown]
  - Treatment noncompliance [Unknown]
  - Alcoholism [Unknown]
  - Malaise [Unknown]

NARRATIVE: CASE EVENT DATE: 20250101
